FAERS Safety Report 10077075 (Version 2)
Quarter: 2014Q2

REPORT INFORMATION
  Report Type: Spontaneous
  Country: US (occurrence: US)
  Receive Date: 20140414
  Receipt Date: 20140502
  Transmission Date: 20141212
  Serious: No
  Sender: FDA-Public Use
  Company Number: US-PFIZER INC-2014102564

PATIENT
  Age: 38 Year
  Sex: Female
  Weight: 71.66 kg

DRUGS (2)
  1. LYRICA [Suspect]
     Indication: FIBROMYALGIA
     Dosage: 75 MG, 2X/DAY
     Dates: start: 201308
  2. LEVOTHYROXIN [Concomitant]
     Indication: HYPERTHYROIDISM
     Dosage: 50 UG, DAILY

REACTIONS (9)
  - Weight increased [Unknown]
  - Vomiting [Unknown]
  - Feeling abnormal [Unknown]
  - Drug withdrawal syndrome [Unknown]
  - Diarrhoea [Unknown]
  - Nausea [Unknown]
  - Migraine [Unknown]
  - Hyperhidrosis [Unknown]
  - Tremor [Unknown]
